FAERS Safety Report 18981484 (Version 1)
Quarter: 2021Q1

REPORT INFORMATION
  Report Type: Spontaneous
  Country: DE (occurrence: GB)
  Receive Date: 20210308
  Receipt Date: 20210308
  Transmission Date: 20210420
  Serious: Yes (Other)
  Sender: FDA-Public Use
  Company Number: GB-ENDO PHARMACEUTICALS INC-2021-001515

PATIENT
  Age: 42 Year
  Sex: Male

DRUGS (1)
  1. AVEED [Suspect]
     Active Substance: TESTOSTERONE UNDECANOATE
     Indication: PRODUCT USED FOR UNKNOWN INDICATION
     Dosage: 1 DF, EVERY 3 MONTHS
     Route: 065
     Dates: start: 201701, end: 20200929

REACTIONS (4)
  - Blood testosterone increased [Recovering/Resolving]
  - Haemoglobin increased [Recovering/Resolving]
  - Hepatic neoplasm [Recovering/Resolving]
  - Haematocrit increased [Recovering/Resolving]

NARRATIVE: CASE EVENT DATE: 20201111
